FAERS Safety Report 8271834-0 (Version None)
Quarter: 2012Q2

REPORT INFORMATION
  Report Type: 
  Country: None (occurrence: None)
  Receive Date: 20120410
  Receipt Date: 20120322
  Transmission Date: 20120825
  Serious: Yes (Other)
  Sender: FDA-Public Use
  Company Number: US-ROCHE-1051955

PATIENT
  Sex: Female

DRUGS (2)
  1. AVASTIN [Suspect]
     Indication: MACULAR OEDEMA
     Route: 050
  2. AVASTIN [Suspect]
     Indication: VENOUS OCCLUSION

REACTIONS (2)
  - COUNTERFEIT DRUG ADMINISTERED [None]
  - DRUG INEFFECTIVE [None]
